FAERS Safety Report 11398780 (Version 4)
Quarter: 2016Q1

REPORT INFORMATION
  Report Type: Report from Study
  Country: CA (occurrence: CA)
  Receive Date: 20150820
  Receipt Date: 20160204
  Transmission Date: 20160525
  Serious: Yes (Hospitalization, Other)
  Sender: FDA-Public Use
  Company Number: CA-ROCHE-1619372

PATIENT
  Age: 86 Year
  Sex: Male

DRUGS (14)
  1. FORZAAR [Concomitant]
  2. APO-FUROSEMIDE [Concomitant]
     Active Substance: FUROSEMIDE
  3. PRADAX [Concomitant]
     Active Substance: DABIGATRAN ETEXILATE MESYLATE
  4. SIMVASTATIN. [Concomitant]
     Active Substance: SIMVASTATIN
  5. ACTEMRA [Suspect]
     Active Substance: TOCILIZUMAB
     Indication: POLYMYALGIA RHEUMATICA
     Route: 042
     Dates: start: 20150422, end: 20150814
  6. PREDNISONE. [Concomitant]
     Active Substance: PREDNISONE
  7. FOSAMAX [Concomitant]
     Active Substance: ALENDRONATE SODIUM
  8. ASAPHEN [Concomitant]
     Active Substance: ASPIRIN
  9. COLCHICINE. [Concomitant]
     Active Substance: COLCHICINE
  10. PANTOPRAZOLE [Concomitant]
     Active Substance: PANTOPRAZOLE SODIUM
  11. TAMSULOSIN [Concomitant]
     Active Substance: TAMSULOSIN
  12. APO-HYDROXYQUINE [Concomitant]
  13. ALLOPURINOL. [Concomitant]
     Active Substance: ALLOPURINOL
  14. BISOPROLOL [Concomitant]
     Active Substance: BISOPROLOL

REACTIONS (7)
  - Skin disorder [Not Recovered/Not Resolved]
  - Gout [Unknown]
  - Respiratory tract infection [Recovered/Resolved]
  - Arthritis bacterial [Unknown]
  - Skin atrophy [Not Recovered/Not Resolved]
  - Tendon rupture [Unknown]
  - Contusion [Not Recovered/Not Resolved]

NARRATIVE: CASE EVENT DATE: 201508
